FAERS Safety Report 24381749 (Version 1)
Quarter: 2024Q4

REPORT INFORMATION
  Report Type: Spontaneous
  Country: US (occurrence: US)
  Receive Date: 20241001
  Receipt Date: 20241001
  Transmission Date: 20250115
  Serious: No
  Sender: ACCORD
  Company Number: US-Accord-422646

PATIENT
  Age: 83 Year
  Sex: Female
  Weight: 59.65 kg

DRUGS (1)
  1. NALTREXONE HYDROCHLORIDE [Suspect]
     Active Substance: NALTREXONE HYDROCHLORIDE
     Indication: Alcoholism
     Dosage: 50MG, 1/2 TABLET, ORAL, ONCE DAILY X 1 WEEK AND THEN INCREASE DOSE TO 50 MG ONCE DAILY ABOUT 3 PM
     Route: 048
     Dates: start: 20240424

REACTIONS (1)
  - Insomnia [Not Recovered/Not Resolved]

NARRATIVE: CASE EVENT DATE: 20240424
